FAERS Safety Report 7673418-1 (Version None)
Quarter: 2011Q3

REPORT INFORMATION
  Report Type: 
  Country: None (occurrence: None)
  Receive Date: 20110810
  Receipt Date: 20110805
  Transmission Date: 20111222
  Serious: No
  Sender: FDA-Public Use
  Company Number: US-PFIZER INC-2011173065

PATIENT
  Sex: Female

DRUGS (3)
  1. RELPAX [Suspect]
     Indication: PREMENSTRUAL SYNDROME
     Dosage: UNK
  2. FLUOXETINE [Suspect]
     Indication: PREMENSTRUAL SYNDROME
     Dosage: UNK
  3. FLUVOXAMINE MALEATE [Suspect]
     Dosage: 50 TO 25 MG

REACTIONS (2)
  - CHEST PAIN [None]
  - MALAISE [None]
